FAERS Safety Report 8079936-9 (Version None)
Quarter: 2012Q1

REPORT INFORMATION
  Report Type: 
  Country: None (occurrence: None)
  Receive Date: 20120128
  Receipt Date: 20110802
  Transmission Date: 20120608
  Serious: No
  Sender: FDA-Public Use
  Company Number: US-ABBOTT-11P-163-0843473-00

PATIENT
  Age: 59 Year
  Sex: Male

DRUGS (2)
  1. HUMIRA [Suspect]
     Indication: CROHN'S DISEASE
     Dosage: DAY 1, 4 INJECTIONS
     Route: 058
     Dates: start: 20110712, end: 20110712
  2. HUMIRA [Suspect]
     Dosage: DAY 15, 2 INJECTIONS
     Route: 058

REACTIONS (1)
  - INJECTION SITE PAIN [None]
